FAERS Safety Report 21480493 (Version 1)
Quarter: 2022Q4

REPORT INFORMATION
  Report Type: Spontaneous
  Country: US (occurrence: None)
  Receive Date: 20221019
  Receipt Date: 20221019
  Transmission Date: 20230112
  Serious: Yes (Other)
  Sender: FDA-Public Use
  Company Number: 2022A347640

PATIENT
  Age: 30208 Day
  Sex: Female
  Weight: 38.7 kg

DRUGS (8)
  1. FULVESTRANT [Suspect]
     Active Substance: FULVESTRANT
     Dosage: MONTHLY
     Route: 030
  2. IBRANCE [Suspect]
     Active Substance: PALBOCICLIB
     Indication: Breast cancer metastatic
     Route: 048
     Dates: start: 2017
  3. TAMOXIFEN [Suspect]
     Active Substance: TAMOXIFEN
     Route: 048
  4. METOPROLOL [Suspect]
     Active Substance: METOPROLOL
     Indication: Atrial fibrillation
     Dosage: 25 MG 1 IN THE MORNING AND 1 AT NIGHT
     Route: 048
     Dates: start: 2016
  5. METOPROLOL [Suspect]
     Active Substance: METOPROLOL
     Indication: Blood pressure decreased
     Dosage: 25 MG 1 IN THE MORNING AND 1 AT NIGHT
     Route: 048
     Dates: start: 2016
  6. METOPROLOL [Suspect]
     Active Substance: METOPROLOL
     Indication: Atrial fibrillation
     Route: 048
  7. METOPROLOL [Suspect]
     Active Substance: METOPROLOL
     Indication: Blood pressure decreased
     Route: 048
  8. ELIQUIS [Concomitant]
     Active Substance: APIXABAN
     Indication: Atrial fibrillation
     Route: 065
     Dates: start: 201612

REACTIONS (15)
  - Bone cancer [Unknown]
  - Thrombosis [Unknown]
  - Uterine cancer [Unknown]
  - Neoplasm [Recovered/Resolved]
  - Chest pain [Unknown]
  - Arthritis [Unknown]
  - Body height decreased [Unknown]
  - Fatigue [Unknown]
  - Neutropenia [Unknown]
  - Alopecia [Unknown]
  - Platelet count decreased [Unknown]
  - Intentional dose omission [Unknown]
  - Product use issue [Not Recovered/Not Resolved]
  - Intentional product use issue [Not Recovered/Not Resolved]
  - Product dose omission issue [Not Recovered/Not Resolved]

NARRATIVE: CASE EVENT DATE: 20221003
